FAERS Safety Report 8809367 (Version 2)
Quarter: 2012Q4

REPORT INFORMATION
  Report Type: 
  Country: PR (occurrence: PR)
  Receive Date: 20120926
  Receipt Date: 20121017
  Transmission Date: 20130627
  Serious: Yes (Death, Other)
  Sender: FDA-Public Use
  Company Number: PR-ROXANE LABORATORIES, INC.-2012-RO-01917RO

PATIENT
  Sex: Male

DRUGS (6)
  1. PREDNISONE [Suspect]
  2. BETASERON [Suspect]
  3. AVONEX [Suspect]
  4. METHOTREXATE [Suspect]
  5. COPAXONE [Suspect]
  6. TYSABRI [Suspect]

REACTIONS (5)
  - Death [Fatal]
  - Drug ineffective [Unknown]
  - Condition aggravated [Unknown]
  - Unevaluable event [Unknown]
  - Product quality issue [Unknown]
